FAERS Safety Report 19444141 (Version 1)
Quarter: 2021Q2

REPORT INFORMATION
  Report Type: Spontaneous
  Country: GB (occurrence: GB)
  Receive Date: 20210621
  Receipt Date: 20210621
  Transmission Date: 20210717
  Serious: Yes (Death, Other)
  Sender: FDA-Public Use
  Company Number: GB-TEVA-2021-GB-1923708

PATIENT
  Age: 69 Year
  Sex: Female
  Weight: 64.7 kg

DRUGS (4)
  1. BORTEZOMIB. [Suspect]
     Active Substance: BORTEZOMIB
     Indication: AMYLOIDOSIS
     Dosage: 1.3 MG
     Route: 058
     Dates: start: 20190717, end: 20191218
  2. CYCLOPHOSPHAMIDE. [Suspect]
     Active Substance: CYCLOPHOSPHAMIDE
     Indication: AMYLOIDOSIS
     Dosage: 500 MG
     Route: 048
     Dates: start: 20190717, end: 20191218
  3. DARATUMUMAB [Suspect]
     Active Substance: DARATUMUMAB
     Indication: AMYLOIDOSIS
     Dosage: 1800 MG
     Route: 058
     Dates: start: 20190717, end: 20200226
  4. DEXAMETHASONE. [Suspect]
     Active Substance: DEXAMETHASONE
     Indication: AMYLOIDOSIS
     Dosage: 20 MG
     Route: 048
     Dates: start: 20190717, end: 20200226

REACTIONS (4)
  - Product use in unapproved indication [Fatal]
  - Cardiac arrest [Fatal]
  - Cardiac amyloidosis [Fatal]
  - Off label use [Fatal]

NARRATIVE: CASE EVENT DATE: 20200315
